FAERS Safety Report 9357278 (Version 3)
Quarter: 2014Q1

REPORT INFORMATION
  Report Type: Report from Study
  Country: GB (occurrence: GB)
  Receive Date: 20130620
  Receipt Date: 20140107
  Transmission Date: 20141002
  Serious: Yes (Hospitalization, Other)
  Sender: FDA-Public Use
  Company Number: GB-VERTEX PHARMACEUTICALS INC-000000000000000616

PATIENT
  Age: 43 Year
  Sex: Male

DRUGS (4)
  1. VX-950 (TELAPREVIR) [Suspect]
     Indication: HEPATITIS C
     Dosage: DOSAGE FORM: TABLET
     Route: 048
     Dates: start: 20120423, end: 20120716
  2. PEGYLATED INTERFERON ALFA-2A [Suspect]
     Indication: CHRONIC HEPATITIS C
     Dosage: DOSAGE FORM: INJECTION, DOSE ADJUSTED FOR WEIGHT
     Route: 058
     Dates: start: 20120423, end: 20121029
  3. RIBAVIRIN [Suspect]
     Indication: HEPATITIS C
     Dosage: DOSAGE FORM: TABLETS
     Route: 048
     Dates: start: 20120423
  4. RIBAVIRIN [Suspect]
     Dosage: DOSAGE FORM: TABLETS
     Route: 048
     Dates: end: 20121029

REACTIONS (16)
  - Lethargy [Unknown]
  - Hepatocellular carcinoma [Unknown]
  - Hepatic cirrhosis [Unknown]
  - Jaundice [Unknown]
  - Anaemia [Unknown]
  - Diarrhoea [Unknown]
  - Blood bilirubin increased [Unknown]
  - Oedema peripheral [Unknown]
  - Fatigue [Unknown]
  - Fluid retention [Unknown]
  - Pain [Unknown]
  - Papilloma [Unknown]
  - Erythema [Unknown]
  - Pruritus [Unknown]
  - Nausea [Unknown]
  - Vomiting [Recovered/Resolved]
